FAERS Safety Report 8579789-6 (Version None)
Quarter: 2012Q3

REPORT INFORMATION
  Report Type: 
  Country: None (occurrence: None)
  Receive Date: 20120808
  Receipt Date: 20120802
  Transmission Date: 20120928
  Serious: Yes (Other)
  Sender: FDA-Public Use
  Company Number: AR-GENZYME-CERZ-1002041

PATIENT

DRUGS (2)
  1. CEREZYME [Suspect]
     Dosage: 60 U/KG, ^INTERMITTENT^
     Route: 042
  2. CEREZYME [Suspect]
     Indication: GAUCHER'S DISEASE
     Dosage: 60 U/KG, Q2W
     Route: 042

REACTIONS (3)
  - UTERINE INFLAMMATION [None]
  - BLIGHTED OVUM [None]
  - ABORTION SPONTANEOUS [None]
